FAERS Safety Report 5027033-9 (Version None)
Quarter: 2006Q2

REPORT INFORMATION
  Report Type: 
  Country: None (occurrence: None)
  Receive Date: 20060612
  Receipt Date: 20060601
  Transmission Date: 20061013
  Serious: Yes (Hospitalization)
  Sender: FDA-Public Use
  Company Number: 2006BI006405

PATIENT
  Age: 51 Year
  Sex: Male
  Weight: 132.4503 kg

DRUGS (11)
  1. AVONEX [Suspect]
     Indication: MULTIPLE SCLEROSIS
     Dosage: 30 UG; QW; IM
     Route: 030
     Dates: start: 20050501
  2. CARTIA XT [Concomitant]
  3. LABETALOL [Concomitant]
  4. TRILEPTAL [Concomitant]
  5. HUMULIN R [Concomitant]
  6. HUMULIN N [Concomitant]
  7. LIPITOR [Concomitant]
  8. DIOVAN [Concomitant]
  9. PLAVIX [Concomitant]
  10. NEXIUM [Concomitant]
  11. QUININE SULFATE [Concomitant]

REACTIONS (6)
  - BLOOD CHOLESTEROL INCREASED [None]
  - EPISTAXIS [None]
  - GASTRIC ULCER [None]
  - HYPERTENSION [None]
  - INFLUENZA LIKE ILLNESS [None]
  - MYOCARDIAL INFARCTION [None]
